FAERS Safety Report 7817548-X (Version None)
Quarter: 2011Q4

REPORT INFORMATION
  Report Type: 
  Country: None (occurrence: None)
  Receive Date: 20111017
  Receipt Date: 20111011
  Transmission Date: 20120403
  Serious: Yes (Death)
  Sender: FDA-Public Use
  Company Number: US-JNJFOC-20111005380

PATIENT
  Sex: Male
  Weight: 81.65 kg

DRUGS (2)
  1. STELARA [Suspect]
     Indication: PSORIASIS
     Dosage: ONCE IN 1 WEEK
     Route: 058
  2. ADALIMUMAB [Suspect]
     Indication: PSORIASIS
     Dosage: EVERY OTHER WEEK
     Route: 058

REACTIONS (4)
  - DEATH [None]
  - RASH PUSTULAR [None]
  - PYREXIA [None]
  - ERYTHEMA [None]
